FAERS Safety Report 6611028-5 (Version None)
Quarter: 2010Q1

REPORT INFORMATION
  Report Type: 
  Country: None (occurrence: None)
  Receive Date: 20100222
  Receipt Date: 20100211
  Transmission Date: 20100710
  Serious: Yes (Hospitalization)
  Sender: FDA-Public Use
  Company Number: 2009BE0049

PATIENT
  Age: 6 Year
  Sex: Male
  Weight: 40 kg

DRUGS (1)
  1. ORFADIN [Suspect]
     Indication: TYROSINAEMIA
     Dosage: 24 MG (12 MG, 2 IN 1 D) ORAL
     Route: 048
     Dates: start: 20000901, end: 20071202

REACTIONS (3)
  - ALPHA 1 FOETOPROTEIN INCREASED [None]
  - HEPATIC NEOPLASM MALIGNANT [None]
  - LIVER TRANSPLANT [None]
